FAERS Safety Report 7073400-1 (Version None)
Quarter: 2010Q4

REPORT INFORMATION
  Report Type: 
  Country: None (occurrence: None)
  Receive Date: 20101029
  Receipt Date: 20100610
  Transmission Date: 20110411
  Serious: No
  Sender: FDA-Public Use
  Company Number: A0864300A

PATIENT
  Sex: Female

DRUGS (9)
  1. ADVAIR DISKUS 100/50 [Suspect]
     Indication: CHRONIC OBSTRUCTIVE PULMONARY DISEASE
     Dosage: 1BLS TWICE PER DAY
     Route: 055
  2. SIMVASTATIN [Concomitant]
  3. CARDIOSEL [Concomitant]
  4. XANAX [Concomitant]
  5. LISINOPRIL [Concomitant]
  6. WELLBUTRIN XL [Concomitant]
  7. VICODIN [Concomitant]
  8. ASPIRIN [Concomitant]
  9. RECLAST [Concomitant]

REACTIONS (6)
  - CHEST DISCOMFORT [None]
  - DRUG INEFFECTIVE [None]
  - DYSPNOEA [None]
  - INHALATION THERAPY [None]
  - MALAISE [None]
  - WHEEZING [None]
